FAERS Safety Report 20440008 (Version 2)
Quarter: 2022Q1

REPORT INFORMATION
  Report Type: Spontaneous
  Country: US (occurrence: US)
  Receive Date: 20220207
  Receipt Date: 20220211
  Transmission Date: 20220424
  Serious: Yes (Life-Threatening)
  Sender: FDA-Public Use
  Company Number: US-009507513-2202USA000931

PATIENT

DRUGS (1)
  1. BRIDION [Suspect]
     Active Substance: SUGAMMADEX

REACTIONS (1)
  - Hypotension [Unknown]
